FAERS Safety Report 9853686 (Version 7)
Quarter: 2014Q2

REPORT INFORMATION
  Report Type: Spontaneous
  Country: US (occurrence: US)
  Receive Date: 20140129
  Receipt Date: 20140423
  Transmission Date: 20141212
  Serious: Yes (Hospitalization, Other)
  Sender: FDA-Public Use
  Company Number: US-CELGENEUS-163-21880-13050308

PATIENT
  Age: 67 Year
  Sex: Female
  Weight: 110.9 kg

DRUGS (153)
  1. REVLIMID [Suspect]
     Indication: PLASMA CELL MYELOMA
     Dosage: 25 MILLIGRAM
     Route: 048
     Dates: start: 20120621
  2. REVLIMID [Suspect]
     Dosage: 25 MILLIGRAM
     Route: 048
     Dates: start: 20130404, end: 20130501
  3. REVLIMID [Suspect]
     Dosage: 25 MILLIGRAM
     Route: 048
     Dates: start: 20130708, end: 20140104
  4. DEXAMETHASONE [Suspect]
     Indication: PLASMA CELL MYELOMA
     Dosage: 40 MILLIGRAM
     Route: 048
     Dates: start: 20120621
  5. DEXAMETHASONE [Suspect]
     Dosage: 40 MILLIGRAM
     Route: 048
     Dates: start: 20130404, end: 20130501
  6. DEXAMETHASONE [Suspect]
     Dosage: 40 MILLIGRAM
     Route: 048
     Dates: start: 20130708, end: 20140104
  7. ELOTUZUMAB [Suspect]
     Indication: PLASMA CELL MYELOMA
     Route: 065
  8. ACYCLOVIR [Concomitant]
     Indication: PRODUCT USED FOR UNKNOWN INDICATION
     Dosage: 800 MILLIGRAM
     Route: 048
     Dates: start: 20110210
  9. ALLOPURINOL [Concomitant]
     Indication: PRODUCT USED FOR UNKNOWN INDICATION
     Dosage: 100 MILLIGRAM
     Route: 048
     Dates: start: 20081023, end: 20120920
  10. ALLOPURINOL [Concomitant]
     Dosage: 100 MILLIGRAM
     Route: 048
     Dates: start: 20140205
  11. CETIRIZINE [Concomitant]
     Indication: PRODUCT USED FOR UNKNOWN INDICATION
     Dosage: 10 MILLIGRAM
     Route: 048
     Dates: start: 20111010
  12. CHOLECALCIFEROL [Concomitant]
     Indication: PRODUCT USED FOR UNKNOWN INDICATION
     Dosage: 1000 UNIT
     Route: 048
     Dates: start: 20100212
  13. CYANOCOBALAMIN [Concomitant]
     Indication: PRODUCT USED FOR UNKNOWN INDICATION
     Dosage: 100 MICROGRAM
     Route: 048
     Dates: start: 20120306
  14. FAMOTIDINE [Concomitant]
     Indication: PRODUCT USED FOR UNKNOWN INDICATION
     Dosage: 20 MILLIGRAM
     Route: 048
     Dates: start: 20120306, end: 20140205
  15. FUROSEMIDE [Concomitant]
     Indication: PRODUCT USED FOR UNKNOWN INDICATION
     Dosage: 20 MILLIGRAM
     Route: 048
     Dates: start: 20110608, end: 20120920
  16. FUROSEMIDE [Concomitant]
     Indication: ADVERSE EVENT
     Dosage: 20 MILLIGRAM
     Route: 065
     Dates: start: 20120920, end: 20130720
  17. FUROSEMIDE [Concomitant]
     Dosage: 80 MILLIGRAM
     Route: 041
     Dates: start: 20130708, end: 20130709
  18. FUROSEMIDE [Concomitant]
     Dosage: 40 MILLIGRAM
     Route: 065
     Dates: start: 20130710, end: 20140107
  19. FUROSEMIDE [Concomitant]
     Dosage: 40 MILLIGRAM
     Route: 048
     Dates: start: 20140114
  20. FUROSEMIDE [Concomitant]
     Dosage: 20 MILLIGRAM
     Route: 065
     Dates: start: 20140108, end: 20140109
  21. FUROSEMIDE [Concomitant]
     Dosage: 40 MILLIGRAM
     Route: 041
     Dates: start: 20140109, end: 20140112
  22. FUROSEMIDE [Concomitant]
     Dosage: 80 MILLIGRAM
     Route: 041
     Dates: start: 20140111, end: 20140111
  23. HYDROCODONE/ACETAMINOPHEN [Concomitant]
     Indication: PRODUCT USED FOR UNKNOWN INDICATION
     Dosage: 5-500MG, 1-2 TABLETS
     Route: 048
     Dates: start: 20080826, end: 20140103
  24. HYDROCODONE/ACETAMINOPHEN [Concomitant]
     Dosage: 5-325MG
     Route: 048
     Dates: start: 20140104, end: 20140204
  25. HYDROCODONE/ACETAMINOPHEN [Concomitant]
     Dosage: 5-325MG
     Route: 048
     Dates: start: 20140205
  26. LISINOPRIL [Concomitant]
     Indication: PRODUCT USED FOR UNKNOWN INDICATION
     Dosage: 10 MILLIGRAM
     Route: 048
     Dates: start: 20110210, end: 20140105
  27. LISINOPRIL [Concomitant]
     Dosage: 5 MILLIGRAM
     Route: 048
     Dates: start: 20140106, end: 20140108
  28. LISINOPRIL [Concomitant]
     Route: 065
     Dates: start: 20140113, end: 20140204
  29. LISINOPRIL [Concomitant]
     Dosage: 10 MILLIGRAM
     Route: 065
     Dates: start: 20140205, end: 20140220
  30. LISINOPRIL [Concomitant]
     Dosage: 2.5 MILLIGRAM
     Route: 065
     Dates: start: 20140220
  31. WARFARIN [Concomitant]
     Indication: PRODUCT USED FOR UNKNOWN INDICATION
     Dosage: 2.5 MILLIGRAM
     Route: 065
     Dates: start: 20090902, end: 20120726
  32. WARFARIN [Concomitant]
     Dosage: 2 MILLIGRAM
     Route: 065
     Dates: start: 20120726, end: 20130427
  33. WARFARIN [Concomitant]
     Dosage: 1.5 MILLIGRAM
     Route: 065
     Dates: start: 20130430, end: 20130708
  34. WARFARIN [Concomitant]
     Dosage: 3 MILLIGRAM
     Route: 065
     Dates: start: 20130430, end: 20130708
  35. WARFARIN [Concomitant]
     Dosage: 1.5 MILLIGRAM
     Route: 065
     Dates: start: 20130712, end: 20140110
  36. WARFARIN [Concomitant]
     Dosage: 1.5 MILLIGRAM
     Route: 065
     Dates: start: 20140113, end: 20140114
  37. WARFARIN [Concomitant]
     Dosage: 2 MILLIGRAM
     Route: 065
     Dates: start: 20140114, end: 20140115
  38. WARFARIN [Concomitant]
     Dosage: 3 MILLIGRAM
     Route: 065
     Dates: start: 20140115, end: 20140115
  39. WARFARIN [Concomitant]
     Route: 065
     Dates: start: 20140117
  40. WARFARIN [Concomitant]
     Dosage: 1 MILLIGRAM
     Route: 065
     Dates: start: 20140112, end: 20140113
  41. WARFARIN [Concomitant]
     Dosage: 2 MILLIGRAM
     Route: 065
     Dates: start: 20140117, end: 20140205
  42. ZOLPIDEM [Concomitant]
     Indication: PRODUCT USED FOR UNKNOWN INDICATION
     Dosage: 10 MILLIGRAM
     Route: 065
     Dates: start: 20090710, end: 20130207
  43. ZOLPIDEM [Concomitant]
     Dosage: 5 MILLIGRAM
     Route: 065
     Dates: start: 20130207, end: 20130221
  44. ZOLPIDEM [Concomitant]
     Dosage: 5 MILLIGRAM
     Route: 065
     Dates: start: 20130221
  45. METOPROLOL [Concomitant]
     Indication: ADVERSE EVENT
     Dosage: 50 MILLIGRAM
     Route: 065
     Dates: start: 20120823, end: 20140103
  46. METOPROLOL [Concomitant]
     Dosage: 150 MILLIGRAM
     Route: 065
     Dates: start: 20130707, end: 20130709
  47. METOPROLOL [Concomitant]
     Dosage: 100 MILLIGRAM
     Route: 065
     Dates: start: 20130709, end: 20140204
  48. POTASSIUM CHLORIDE [Concomitant]
     Indication: ADVERSE EVENT
     Dosage: 20 MILLIEQUIVALENTS
     Route: 048
     Dates: start: 20120920, end: 20130706
  49. POTASSIUM CHLORIDE [Concomitant]
     Route: 048
     Dates: start: 20130707, end: 20130712
  50. POTASSIUM CHLORIDE [Concomitant]
     Dosage: 20 MILLIEQUIVALENTS
     Route: 048
     Dates: start: 20130712, end: 20131127
  51. POTASSIUM CHLORIDE [Concomitant]
     Dosage: 20 MILLIEQUIVALENTS
     Route: 048
     Dates: start: 20131127
  52. POTASSIUM CHLORIDE [Concomitant]
     Dosage: 20 MILLIEQUIVALENTS
     Route: 041
     Dates: start: 20140104, end: 20140117
  53. POTASSIUM CHLORIDE [Concomitant]
     Route: 048
     Dates: start: 20140104, end: 20140117
  54. POTASSIUM CHLORIDE [Concomitant]
     Dosage: 20 MILLIEQUIVALENTS
     Dates: start: 20140104, end: 20140117
  55. POTASSIUM CHLORIDE [Concomitant]
     Route: 041
     Dates: start: 20140104, end: 20140117
  56. POTASSIUM CHLORIDE [Concomitant]
     Dosage: 40 MILLIEQUIVALENTS
     Dates: start: 20140104, end: 20140117
  57. AZITHROMYCIN [Concomitant]
     Indication: ADVERSE EVENT
     Route: 065
     Dates: start: 20121213, end: 20121217
  58. AZITHROMYCIN [Concomitant]
     Route: 041
     Dates: start: 20130427, end: 20130430
  59. ZOMETA [Concomitant]
     Indication: PRODUCT USED FOR UNKNOWN INDICATION
     Route: 065
     Dates: start: 20130207
  60. DOXYCYCLINE [Concomitant]
     Indication: PRODUCT USED FOR UNKNOWN INDICATION
     Route: 065
     Dates: start: 20130430, end: 20131112
  61. INFLUENZA VACCINE [Concomitant]
     Indication: PRODUCT USED FOR UNKNOWN INDICATION
     Route: 065
     Dates: start: 20121018, end: 20121018
  62. AMIDARONE [Concomitant]
     Indication: ADVERSE EVENT
     Dosage: 400 MILLIGRAM
     Route: 048
     Dates: start: 20130304, end: 20130315
  63. AMIDARONE [Concomitant]
     Dosage: 200 MILLIGRAM
     Route: 048
     Dates: start: 20130315, end: 20130321
  64. AMIDARONE [Concomitant]
     Dosage: 400 MILLIGRAM
     Route: 048
     Dates: start: 20130321, end: 20130327
  65. AMIDARONE [Concomitant]
     Dosage: 200 MILLIGRAM
     Route: 048
     Dates: start: 20131127
  66. BENZONATATE [Concomitant]
     Indication: ADVERSE EVENT
     Route: 065
     Dates: start: 20130427, end: 20130427
  67. CEFEPIME [Concomitant]
     Indication: ADVERSE EVENT
     Dosage: 4 GRAM
     Route: 065
     Dates: start: 20130427, end: 20130430
  68. CEFEPIME [Concomitant]
     Dosage: 2000 MILLIGRAM
     Route: 065
     Dates: start: 20130707, end: 20130708
  69. OXYGEN [Concomitant]
     Indication: ADVERSE EVENT
     Route: 065
     Dates: start: 20130427, end: 20130430
  70. OXYGEN [Concomitant]
     Route: 065
     Dates: start: 20130707, end: 20130712
  71. ACETAMINOPHEN [Concomitant]
     Indication: ADVERSE EVENT
     Route: 048
     Dates: start: 20130427, end: 20130430
  72. ACETAMINOPHEN [Concomitant]
     Route: 048
     Dates: start: 20130429, end: 20130429
  73. IPRATROPIUM [Concomitant]
     Indication: ADVERSE EVENT
     Route: 055
     Dates: start: 20130427, end: 20130430
  74. IMMUNE GLOBULIN INFUSION [Concomitant]
     Indication: ADVERSE EVENT
     Route: 065
     Dates: start: 20130429, end: 20130429
  75. IMMUNE GLOBULIN INFUSION [Concomitant]
     Route: 065
     Dates: start: 20140219, end: 20140219
  76. IMMUNE GLOBULIN INFUSION [Concomitant]
     Route: 065
     Dates: start: 20140319, end: 20140319
  77. BENADRYL [Concomitant]
     Indication: PRODUCT USED FOR UNKNOWN INDICATION
     Route: 065
     Dates: start: 20130429, end: 20130429
  78. BENADRYL [Concomitant]
     Route: 065
     Dates: start: 20140219, end: 20140219
  79. BENADRYL [Concomitant]
     Route: 041
     Dates: start: 20140319, end: 20140319
  80. PROCHLORPERAZINE [Concomitant]
     Indication: PRODUCT USED FOR UNKNOWN INDICATION
     Route: 065
     Dates: start: 20130429, end: 20130429
  81. LEVAQUIN [Concomitant]
     Indication: ADVERSE EVENT
     Route: 065
     Dates: start: 20130610, end: 20130615
  82. LEVAQUIN [Concomitant]
     Route: 065
     Dates: start: 20130707, end: 20130707
  83. LEVAQUIN [Concomitant]
     Dosage: 500 MILLIGRAM
     Route: 065
     Dates: start: 20130707, end: 20130724
  84. LEVAQUIN [Concomitant]
     Route: 065
     Dates: start: 20140104, end: 20140104
  85. LEVAQUIN [Concomitant]
     Route: 065
     Dates: start: 20140104, end: 20140107
  86. PREDNISONE [Concomitant]
     Indication: ADVERSE EVENT
     Route: 048
     Dates: start: 20130709, end: 20130711
  87. PREDNISONE [Concomitant]
     Route: 065
     Dates: start: 20130712, end: 20130724
  88. PREDNISONE [Concomitant]
     Dosage: 40 MILLIGRAM
     Route: 048
     Dates: start: 20140110, end: 20140114
  89. TYLENOL [Concomitant]
     Indication: ADVERSE EVENT
     Route: 065
     Dates: start: 20130707, end: 20130712
  90. TYLENOL [Concomitant]
     Route: 065
     Dates: start: 20140103, end: 20140104
  91. TYLENOL [Concomitant]
     Route: 065
     Dates: start: 20140104, end: 20140117
  92. TYLENOL [Concomitant]
     Route: 048
     Dates: start: 20140219, end: 20140219
  93. TYLENOL [Concomitant]
     Route: 048
     Dates: start: 20140319, end: 20140319
  94. CEFTAROLINE [Concomitant]
     Indication: ADVERSE EVENT
     Dosage: 1200 MILLIGRAM
     Route: 065
     Dates: start: 20130708, end: 20130711
  95. CEFUROXIME [Concomitant]
     Indication: PRODUCT USED FOR UNKNOWN INDICATION
     Dosage: 1000 MILLIGRAM
     Route: 065
     Dates: start: 20130711, end: 20130724
  96. CEFUROXIME [Concomitant]
     Dosage: 500 MILLIGRAM
     Route: 065
     Dates: start: 20140110, end: 20140110
  97. ALBUTEROL W/IPRATROPIUM [Concomitant]
     Indication: PRODUCT USED FOR UNKNOWN INDICATION
     Route: 065
     Dates: start: 20130707, end: 20130712
  98. ALBUTEROL W/IPRATROPIUM [Concomitant]
     Route: 065
     Dates: start: 20140103, end: 20140104
  99. ALBUTEROL W/IPRATROPIUM [Concomitant]
     Route: 065
     Dates: start: 20140108, end: 20140117
  100. METHYLPREDNISOLONE [Concomitant]
     Indication: ADVERSE EVENT
     Route: 041
     Dates: start: 20130707, end: 20130707
  101. METHYLPREDNISOLONE [Concomitant]
     Route: 041
     Dates: start: 20130708, end: 20130709
  102. METHYLPREDNISOLONE [Concomitant]
     Dosage: 120 MILLIGRAM
     Route: 065
     Dates: start: 20140109, end: 20140110
  103. ALBUTEROL [Concomitant]
     Indication: ADVERSE EVENT
     Route: 065
     Dates: start: 20130707, end: 20130707
  104. LOVENOX [Concomitant]
     Indication: PRODUCT USED FOR UNKNOWN INDICATION
     Dosage: 60 MILLIGRAM
     Route: 065
     Dates: start: 20140113, end: 20140113
  105. LOVENOX [Concomitant]
     Dosage: 100 MILLIGRAM
     Route: 065
     Dates: start: 20140113, end: 20140116
  106. LOVENOX [Concomitant]
     Dosage: 60 MILLIGRAM
     Route: 065
     Dates: start: 20140113, end: 20140113
  107. ASPIRIN [Concomitant]
     Indication: PRODUCT USED FOR UNKNOWN INDICATION
     Dosage: 325 MILLIGRAM
     Route: 065
     Dates: start: 20140111, end: 20140112
  108. ASPIRIN [Concomitant]
     Dosage: 325 MILLIGRAM
     Route: 065
     Dates: start: 20140116, end: 20140204
  109. ASPIRIN [Concomitant]
     Dosage: 81 MILLIGRAM
     Route: 065
     Dates: start: 20140112, end: 20140115
  110. PLAVIX [Concomitant]
     Indication: PRODUCT USED FOR UNKNOWN INDICATION
     Dosage: 75 MILLIGRAM
     Route: 065
     Dates: start: 20140116
  111. MIDAZOLAM [Concomitant]
     Indication: PRODUCT USED FOR UNKNOWN INDICATION
     Route: 065
     Dates: start: 20140116, end: 20140117
  112. MIDAZOLAM [Concomitant]
     Route: 065
     Dates: start: 20140112, end: 20140112
  113. LIDOCAINE HCL [Concomitant]
     Indication: PRODUCT USED FOR UNKNOWN INDICATION
     Route: 065
     Dates: start: 20140116, end: 20140116
  114. LIDOCAINE HCL [Concomitant]
     Route: 065
     Dates: start: 20140116, end: 20140117
  115. LIDOCAINE HCL [Concomitant]
     Route: 050
     Dates: start: 20140112, end: 20140112
  116. ATROPINE [Concomitant]
     Indication: PRODUCT USED FOR UNKNOWN INDICATION
     Route: 065
     Dates: start: 20140116, end: 20140117
  117. IOPAMIDOL [Concomitant]
     Indication: PRODUCT USED FOR UNKNOWN INDICATION
     Route: 065
     Dates: start: 20140116, end: 20140116
  118. IOPAMIDOL [Concomitant]
     Route: 065
     Dates: start: 20140112, end: 20140112
  119. FENTANYL [Concomitant]
     Indication: PRODUCT USED FOR UNKNOWN INDICATION
     Route: 065
     Dates: start: 20140116, end: 20140116
  120. FENTANYL [Concomitant]
     Route: 065
     Dates: start: 20140112, end: 20140112
  121. SILVER SULFADIAZINE [Concomitant]
     Indication: ADVERSE EVENT
     Route: 065
     Dates: start: 20140107
  122. AUGMENTIN [Concomitant]
     Indication: ADVERSE EVENT
     Route: 065
     Dates: start: 20131210, end: 20131224
  123. CEPHALEXIN [Concomitant]
     Indication: PRODUCT USED FOR UNKNOWN INDICATION
     Dosage: 2000 MILLIGRAM
     Route: 065
     Dates: start: 20131127, end: 20140104
  124. SODIUM CHLORIDE [Concomitant]
     Indication: PRODUCT USED FOR UNKNOWN INDICATION
     Route: 065
     Dates: start: 20140103, end: 20140104
  125. SODIUM CHLORIDE [Concomitant]
     Route: 065
     Dates: start: 20140104, end: 20140105
  126. SODIUM CHLORIDE [Concomitant]
     Route: 065
     Dates: start: 20140104, end: 20140117
  127. SODIUM CHLORIDE [Concomitant]
     Route: 041
     Dates: start: 20140112, end: 20140117
  128. FERROUS SULFATE [Concomitant]
     Indication: PRODUCT USED FOR UNKNOWN INDICATION
     Dosage: 325 MILLIGRAM
     Route: 048
     Dates: start: 20140104, end: 20140205
  129. NITROGLYCERIN [Concomitant]
     Indication: PRODUCT USED FOR UNKNOWN INDICATION
     Route: 060
     Dates: start: 20140104, end: 20140105
  130. LOPERAMIDE [Concomitant]
     Indication: PRODUCT USED FOR UNKNOWN INDICATION
     Route: 065
     Dates: start: 20140103
  131. LACTULOSE [Concomitant]
     Indication: PRODUCT USED FOR UNKNOWN INDICATION
     Route: 065
     Dates: start: 20140104, end: 20140117
  132. MAGNESIUM HYDROXIDE [Concomitant]
     Indication: PRODUCT USED FOR UNKNOWN INDICATION
     Route: 065
     Dates: start: 20140104, end: 20140117
  133. MAALOX [Concomitant]
     Indication: PRODUCT USED FOR UNKNOWN INDICATION
     Route: 065
     Dates: start: 20140104, end: 20140117
  134. DULCOLAX [Concomitant]
     Indication: PRODUCT USED FOR UNKNOWN INDICATION
     Route: 065
     Dates: start: 20140104, end: 20140117
  135. SENOKOT S [Concomitant]
     Indication: PRODUCT USED FOR UNKNOWN INDICATION
     Route: 048
     Dates: start: 20140104, end: 20140117
  136. LEVOTHYROXINE [Concomitant]
     Indication: PRODUCT USED FOR UNKNOWN INDICATION
     Dosage: 50 MICROGRAM
     Route: 048
     Dates: start: 20140104
  137. ONDANSETRON [Concomitant]
     Indication: PRODUCT USED FOR UNKNOWN INDICATION
     Dosage: 150 MILLIGRAM
     Route: 065
     Dates: start: 20140104, end: 20140104
  138. VENOFER [Concomitant]
     Indication: PRODUCT USED FOR UNKNOWN INDICATION
     Route: 065
     Dates: start: 20140105, end: 20140105
  139. VANCOMYCIN [Concomitant]
     Indication: PRODUCT USED FOR UNKNOWN INDICATION
     Route: 065
     Dates: start: 20140105, end: 20140115
  140. VANCOMYCIN [Concomitant]
     Dosage: 375 MILLIGRAM
     Route: 065
     Dates: start: 20140319
  141. LASIX [Concomitant]
     Indication: PRODUCT USED FOR UNKNOWN INDICATION
     Route: 041
     Dates: start: 20140110, end: 20140112
  142. PHYTONADIONE [Concomitant]
     Indication: PRODUCT USED FOR UNKNOWN INDICATION
     Route: 065
     Dates: start: 20140110, end: 20140111
  143. PHYTONADIONE [Concomitant]
     Route: 065
     Dates: start: 20140110, end: 20140110
  144. CLONIDINE [Concomitant]
     Indication: PRODUCT USED FOR UNKNOWN INDICATION
     Route: 065
     Dates: start: 20140111, end: 20140115
  145. SIMVASTATIN [Concomitant]
     Indication: PRODUCT USED FOR UNKNOWN INDICATION
     Route: 065
     Dates: start: 20140112
  146. OSELTAMIVIR [Concomitant]
     Indication: PRODUCT USED FOR UNKNOWN INDICATION
     Dosage: 150 MILLIGRAM
     Route: 065
     Dates: start: 20140105, end: 20140111
  147. LATANOPROST [Concomitant]
     Indication: PRODUCT USED FOR UNKNOWN INDICATION
     Route: 065
     Dates: start: 20140205
  148. METOPROLOL SUCCINATE [Concomitant]
     Indication: PRODUCT USED FOR UNKNOWN INDICATION
     Dosage: 50 MILLIGRAM
     Route: 065
     Dates: start: 20140205
  149. FLAGYL [Concomitant]
     Indication: PRODUCT USED FOR UNKNOWN INDICATION
     Dosage: 1000 MILLIGRAM
     Route: 065
     Dates: start: 20140211, end: 20140225
  150. FLAGYL [Concomitant]
     Dosage: 1000 MILLIGRAM
     Route: 065
     Dates: start: 20140303, end: 20140318
  151. FLORASTOR [Concomitant]
     Indication: PRODUCT USED FOR UNKNOWN INDICATION
     Route: 048
     Dates: start: 20140211
  152. NACL [Concomitant]
     Indication: PRODUCT USED FOR UNKNOWN INDICATION
     Route: 065
     Dates: start: 20140219, end: 20140219
  153. PANTOPRAZOLE [Concomitant]
     Indication: PRODUCT USED FOR UNKNOWN INDICATION
     Route: 048
     Dates: start: 20140220

REACTIONS (4)
  - Impaired healing [Recovered/Resolved]
  - Skin ulcer [Recovered/Resolved]
  - Pneumonia [Recovered/Resolved]
  - Pneumonia [Recovered/Resolved]
